FAERS Safety Report 16887130 (Version 1)
Quarter: 2019Q4

REPORT INFORMATION
  Report Type: Spontaneous
  Country: CN (occurrence: CN)
  Receive Date: 20191004
  Receipt Date: 20191004
  Transmission Date: 20200122
  Serious: Yes (Hospitalization)
  Sender: FDA-Public Use
  Company Number: CN-GLAXOSMITHKLINE-CN2019APC170112

PATIENT

DRUGS (6)
  1. ENTECAVIR DISPERSIBLE TABLETS [Suspect]
     Active Substance: ENTECAVIR
     Indication: CHRONIC HEPATITIS B
     Dosage: 0.5 MG, Q72H
     Route: 048
     Dates: start: 20190901, end: 20190911
  2. CLOPIDOGREL HYDROGEN SULFATE TABLET [Concomitant]
     Indication: CEREBRAL INFARCTION
     Dosage: 75.000 MG, 1D
     Route: 048
     Dates: start: 20190804, end: 20190911
  3. HEPTODIN [Suspect]
     Active Substance: LAMIVUDINE
     Indication: HIV INFECTION
     Dosage: 25 MG, 1D
     Route: 048
     Dates: start: 20190901, end: 20190911
  4. ZIAGEN [Suspect]
     Active Substance: ABACAVIR SULFATE
     Indication: HIV INFECTION
     Dosage: 1.000 DF, BID
     Route: 048
     Dates: start: 20190901, end: 20190911
  5. PIPERAZINE FERULATE TABLETS [Concomitant]
     Indication: CHRONIC KIDNEY DISEASE
     Dosage: UNK, TID
     Route: 048
     Dates: start: 20190804, end: 20190911
  6. LOPINAVIR + RITONAVIR TABLETS [Suspect]
     Active Substance: LOPINAVIR\RITONAVIR
     Indication: HIV INFECTION
     Dosage: 2.000 DF, BID
     Route: 048
     Dates: start: 20190901, end: 20190911

REACTIONS (4)
  - Drug eruption [Recovering/Resolving]
  - Pruritus [Recovered/Resolved]
  - Urine output decreased [Recovering/Resolving]
  - Purpura [Recovered/Resolved]

NARRATIVE: CASE EVENT DATE: 20190903
